FAERS Safety Report 8216003-5 (Version None)
Quarter: 2012Q1

REPORT INFORMATION
  Report Type: 
  Country: None (occurrence: None)
  Receive Date: 20120316
  Receipt Date: 20120315
  Transmission Date: 20120608
  Serious: No
  Sender: FDA-Public Use
  Company Number: US-PFIZER INC-2012069002

PATIENT
  Sex: Male
  Weight: 113.38 kg

DRUGS (4)
  1. AMITRIPTYLINE [Concomitant]
     Dosage: UNK
  2. CHANTIX [Suspect]
     Dosage: 0.5 MG, 1X/DAY
     Route: 048
     Dates: start: 20120201
  3. CHANTIX [Suspect]
     Dosage: 1 MG, 2X/DAY
     Route: 048
  4. CHANTIX [Suspect]
     Indication: SMOKING CESSATION THERAPY
     Dosage: 0.5 MG, 1X/DAY
     Route: 048
     Dates: start: 20120105, end: 20120201

REACTIONS (1)
  - DRUG EFFECT DECREASED [None]
